FAERS Safety Report 7972486-7 (Version None)
Quarter: 2011Q4

REPORT INFORMATION
  Report Type: 
  Country: None (occurrence: None)
  Receive Date: 20111213
  Receipt Date: 20111206
  Transmission Date: 20120403
  Serious: Yes (Other)
  Sender: FDA-Public Use
  Company Number: US-BAYER-2011-104126

PATIENT
  Age: 40 Year
  Sex: Female
  Weight: 68.027 kg

DRUGS (1)
  1. GADAVIST [Suspect]
     Indication: NUCLEAR MAGNETIC RESONANCE IMAGING BREAST
     Dosage: 7 ML, ONCE
     Route: 042
     Dates: start: 20111018

REACTIONS (4)
  - EYE SWELLING [None]
  - PHARYNGEAL OEDEMA [None]
  - THROAT IRRITATION [None]
  - URTICARIA [None]
